FAERS Safety Report 19598730 (Version 1)
Quarter: 2021Q3

REPORT INFORMATION
  Report Type: Spontaneous
  Country: US (occurrence: US)
  Receive Date: 20210722
  Receipt Date: 20210722
  Transmission Date: 20211014
  Serious: Yes (Hospitalization)
  Sender: FDA-Public Use
  Company Number: None

PATIENT
  Age: 53 Year
  Sex: Female

DRUGS (10)
  1. BOTOX [Suspect]
     Active Substance: ONABOTULINUMTOXINA
     Indication: MIGRAINE
     Dosage: EVERY 3 MONTHS
     Route: 030
     Dates: start: 20151124
  2. SPIRONOLACT [Concomitant]
     Active Substance: SPIRONOLACTONE
  3. XTA MPZA [Concomitant]
  4. TOPIRAMATE. [Concomitant]
     Active Substance: TOPIRAMATE
  5. GABAPENTIN. [Concomitant]
     Active Substance: GABAPENTIN
  6. LACTU LOSE [Concomitant]
  7. OXYCODONE [Concomitant]
     Active Substance: OXYCODONE
  8. FUROSEMIDE. [Concomitant]
     Active Substance: FUROSEMIDE
  9. NARCAN [Concomitant]
     Active Substance: NALOXONE HYDROCHLORIDE
  10. ROSUVASTATIN. [Concomitant]
     Active Substance: ROSUVASTATIN

REACTIONS (1)
  - Liver transplant [None]

NARRATIVE: CASE EVENT DATE: 20210721
